FAERS Safety Report 15313285 (Version 1)
Quarter: 2018Q3

REPORT INFORMATION
  Report Type: Spontaneous
  Country: US (occurrence: US)
  Receive Date: 20180823
  Receipt Date: 20180823
  Transmission Date: 20181010
  Serious: Yes (Other)
  Sender: FDA-Public Use
  Company Number: US-ELI_LILLY_AND_COMPANY-US201808007441

PATIENT
  Age: 56 Year
  Sex: Female

DRUGS (3)
  1. CARBOPLATIN. [Concomitant]
     Active Substance: CARBOPLATIN
     Indication: NON-SMALL CELL LUNG CANCER
     Dosage: UNK, UNKNOWN
     Route: 065
     Dates: start: 20171101, end: 20180220
  2. ALIMTA [Suspect]
     Active Substance: PEMETREXED DISODIUM
     Indication: NON-SMALL CELL LUNG CANCER
     Dosage: 835 MG, UNKNOWN
     Route: 065
     Dates: start: 20171101, end: 20180220
  3. ALIMTA [Suspect]
     Active Substance: PEMETREXED DISODIUM
     Dosage: 835 MG, UNKNOWN
     Route: 065
     Dates: start: 20180326, end: 20180430

REACTIONS (18)
  - Constipation [Unknown]
  - Haematemesis [Unknown]
  - Hypoaesthesia [Unknown]
  - Decreased appetite [Unknown]
  - Off label use [Unknown]
  - Nausea [Unknown]
  - Vomiting [Unknown]
  - Hypokalaemia [Unknown]
  - Anaemia [Unknown]
  - Hypomagnesaemia [Unknown]
  - Abdominal pain [Unknown]
  - Fatigue [Unknown]
  - Paraesthesia [Unknown]
  - Dyspnoea [Unknown]
  - Haemoptysis [Unknown]
  - Dehydration [Unknown]
  - Diarrhoea [Unknown]
  - Dizziness [Unknown]

NARRATIVE: CASE EVENT DATE: 20171101
